FAERS Safety Report 22023430 (Version 2)
Quarter: 2025Q3

REPORT INFORMATION
  Report Type: Spontaneous
  Country: GB (occurrence: GB)
  Receive Date: 20230223
  Receipt Date: 20250825
  Transmission Date: 20251020
  Serious: Yes (Other)
  Sender: JOHNSON AND JOHNSON
  Company Number: GB-ABBVIE-4284359

PATIENT
  Age: 34 Year
  Sex: Male

DRUGS (5)
  1. USTEKINUMAB [Suspect]
     Active Substance: USTEKINUMAB
     Indication: Product used for unknown indication
     Route: 058
     Dates: start: 201710
  2. ADALIMUMAB [Suspect]
     Active Substance: ADALIMUMAB
     Indication: Crohn^s disease
     Dates: start: 201402, end: 201412
  3. THIOGUANINE [Suspect]
     Active Substance: THIOGUANINE
     Indication: Product used for unknown indication
     Route: 065
  4. VEDOLIZUMAB [Concomitant]
     Active Substance: VEDOLIZUMAB
     Indication: Product used for unknown indication
     Route: 042
  5. VEDOLIZUMAB [Concomitant]
     Active Substance: VEDOLIZUMAB
     Route: 050

REACTIONS (8)
  - Short-bowel syndrome [Recovering/Resolving]
  - Therapeutic product effect incomplete [Unknown]
  - Pain [Unknown]
  - Therapeutic product effect incomplete [Unknown]
  - Gastrointestinal stoma complication [Unknown]
  - Intra-abdominal fluid collection [Unknown]
  - Drug ineffective [Unknown]
  - Anal fistula [Unknown]

NARRATIVE: CASE EVENT DATE: 20140101
